FAERS Safety Report 8234418-6 (Version None)
Quarter: 2012Q1

REPORT INFORMATION
  Report Type: 
  Country: None (occurrence: None)
  Receive Date: 20120307
  Receipt Date: 20100917
  Transmission Date: 20120608
  Serious: Yes (Other)
  Sender: FDA-Public Use
  Company Number: PHHY2010US62482

PATIENT
  Age: 75 Year
  Sex: Male

DRUGS (2)
  1. AFINITOR [Suspect]
     Indication: RENAL CELL CARCINOMA
  2. LISINOPRIL [Concomitant]

REACTIONS (2)
  - ANGIOEDEMA [None]
  - ENDOTRACHEAL INTUBATION [None]
